FAERS Safety Report 25538699 (Version 1)
Quarter: 2025Q3

REPORT INFORMATION
  Report Type: Spontaneous
  Country: LB (occurrence: LB)
  Receive Date: 20250710
  Receipt Date: 20250710
  Transmission Date: 20251020
  Serious: Yes (Death, Other)
  Sender: STRIDES
  Company Number: LB-STRIDES ARCOLAB LIMITED-2025SP008451

PATIENT
  Age: 16 Day
  Sex: Female

DRUGS (9)
  1. METHOTREXATE [Suspect]
     Active Substance: METHOTREXATE
     Indication: Rhabdoid tumour
     Route: 065
  2. METHOTREXATE [Suspect]
     Active Substance: METHOTREXATE
     Indication: Congenital malignant neoplasm
  3. CYCLOPHOSPHAMIDE [Suspect]
     Active Substance: CYCLOPHOSPHAMIDE
     Indication: Rhabdoid tumour
     Route: 065
  4. CYCLOPHOSPHAMIDE [Suspect]
     Active Substance: CYCLOPHOSPHAMIDE
     Indication: Congenital malignant neoplasm
  5. LAROTRECTINIB [Suspect]
     Active Substance: LAROTRECTINIB
     Indication: Rhabdoid tumour
     Route: 065
  6. LAROTRECTINIB [Suspect]
     Active Substance: LAROTRECTINIB
     Indication: Congenital malignant neoplasm
  7. VINBLASTINE [Suspect]
     Active Substance: VINBLASTINE
     Indication: Rhabdoid tumour
     Route: 065
  8. VINBLASTINE [Suspect]
     Active Substance: VINBLASTINE
     Indication: Congenital malignant neoplasm
  9. PROPRANOLOL [Concomitant]
     Active Substance: PROPRANOLOL HYDROCHLORIDE
     Indication: Haemangioma congenital
     Route: 065

REACTIONS (2)
  - Neoplasm progression [Fatal]
  - Off label use [Unknown]
